FAERS Safety Report 19602266 (Version 1)
Quarter: 2021Q3

REPORT INFORMATION
  Report Type: Spontaneous
  Country: US (occurrence: US)
  Receive Date: 20210724
  Receipt Date: 20210724
  Transmission Date: 20211014
  Serious: Yes (Other)
  Sender: FDA-Public Use
  Company Number: US-ROCHE-2875765

PATIENT

DRUGS (2)
  1. RITUXAN [Suspect]
     Active Substance: RITUXIMAB
     Indication: LYMPHOMA
     Route: 065
  2. BENDAMUSTINE [Concomitant]
     Active Substance: BENDAMUSTINE

REACTIONS (1)
  - Ascites [Unknown]
